FAERS Safety Report 4738222-2 (Version None)
Quarter: 2005Q3

REPORT INFORMATION
  Report Type: 
  Country: None (occurrence: None)
  Receive Date: 20050808
  Receipt Date: 20050808
  Transmission Date: 20060218
  Serious: No
  Sender: FDA-Public Use
  Company Number: None

PATIENT

DRUGS (4)
  1. QWELL [Suspect]
     Dosage: LIQUID
  2. KWELL [Suspect]
     Dosage: LOTIONSHAMPOO
  3. LINDANE [Suspect]
     Dosage: LOTIONSHAMPOO
  4. LINDANE [Suspect]
     Dosage: LOTIONSHAMPOO

REACTIONS (1)
  - MEDICATION ERROR [None]
